FAERS Safety Report 12591962 (Version 1)
Quarter: 2016Q3

REPORT INFORMATION
  Report Type: Spontaneous
  Country: US (occurrence: None)
  Receive Date: 20160725
  Receipt Date: 20160725
  Transmission Date: 20161109
  Serious: Yes (Life-Threatening, Hospitalization, Disabling, Other)
  Sender: FDA-Public Use
  Company Number: None

PATIENT
  Age: 64 Year
  Sex: Female
  Weight: 67.13 kg

DRUGS (11)
  1. HYOSCYAMINE. [Suspect]
     Active Substance: HYOSCYAMINE
     Indication: IRRITABLE BOWEL SYNDROME
     Dosage: 180 TABLET(S) 1-3 DAYS WEEK/ ? TAKEN UNDER THE TONGUE
     Route: 060
  2. XANEX [Concomitant]
  3. BIOTIN [Concomitant]
     Active Substance: BIOTIN
  4. LOVENOX [Concomitant]
     Active Substance: ENOXAPARIN SODIUM
  5. KEPPRA [Concomitant]
     Active Substance: LEVETIRACETAM
  6. HYOSCYAMINE. [Suspect]
     Active Substance: HYOSCYAMINE
     Indication: ABDOMINAL PAIN UPPER
     Dosage: 180 TABLET(S) 1-3 DAYS WEEK/ ? TAKEN UNDER THE TONGUE
     Route: 060
  7. RESTASIS [Concomitant]
     Active Substance: CYCLOSPORINE
  8. HYOSCYAMINE. [Suspect]
     Active Substance: HYOSCYAMINE
     Indication: POSTOPERATIVE CARE
     Dosage: 180 TABLET(S) 1-3 DAYS WEEK/ ? TAKEN UNDER THE TONGUE
     Route: 060
  9. TUMS ULTRA 1000 [Concomitant]
  10. VITAMIN D3 [Concomitant]
     Active Substance: CHOLECALCIFEROL
  11. HYOSCYAMINE. [Suspect]
     Active Substance: HYOSCYAMINE
     Indication: COLON OPERATION
     Dosage: 180 TABLET(S) 1-3 DAYS WEEK/ ? TAKEN UNDER THE TONGUE
     Route: 060

REACTIONS (10)
  - Fall [None]
  - Product solubility abnormal [None]
  - Impaired driving ability [None]
  - Thrombosis [None]
  - Infection [None]
  - Product physical consistency issue [None]
  - Seizure [None]
  - Haematoma [None]
  - Product taste abnormal [None]
  - Product substitution issue [None]

NARRATIVE: CASE EVENT DATE: 20160628
